FAERS Safety Report 6939312-6 (Version None)
Quarter: 2010Q3

REPORT INFORMATION
  Report Type: 
  Country: None (occurrence: None)
  Receive Date: 20100824
  Receipt Date: 20100813
  Transmission Date: 20110219
  Serious: Yes (Other)
  Sender: FDA-Public Use
  Company Number: US-AMGEN-QUU402819

PATIENT
  Sex: Female
  Weight: 88.1 kg

DRUGS (28)
  1. ENBREL [Suspect]
     Indication: RHEUMATOID ARTHRITIS
     Route: 058
     Dates: start: 20001001, end: 20091001
  2. NEULASTA [Suspect]
     Indication: CHEMOTHERAPY
     Dates: start: 20091125
  3. NEXIUM [Concomitant]
  4. AMBIEN [Concomitant]
     Route: 048
  5. CYCLOSPORINE OPHTHALMIC EMULSION [Concomitant]
  6. PLAQUENIL [Concomitant]
     Route: 048
  7. CARDIZEM CD [Concomitant]
     Route: 048
  8. LOZOL [Concomitant]
     Route: 048
  9. ZOMIG [Concomitant]
     Route: 048
  10. PROVENTIL GENTLEHALER [Concomitant]
     Route: 055
  11. FISH OIL [Concomitant]
  12. CALCIUM [Concomitant]
     Route: 048
  13. VITAMIN B COMPLEX CAP [Concomitant]
     Route: 048
  14. MULTI-VITAMINS [Concomitant]
     Route: 048
  15. MAGNESIUM GLUCONATE [Concomitant]
     Route: 048
  16. KLONOPIN [Concomitant]
  17. ENALAPRIL MALEATE [Concomitant]
     Route: 048
  18. SIMVASTATIN [Concomitant]
     Route: 048
  19. NASACORT [Concomitant]
     Route: 055
  20. ATIVAN [Concomitant]
     Route: 048
  21. VENLAFAXINE HCL [Concomitant]
     Route: 048
  22. CETIRIZINE HYDROCHLORIDE [Concomitant]
     Route: 048
  23. PREMARIN [Concomitant]
     Route: 067
  24. OXYCODONE HCL [Concomitant]
     Route: 048
  25. SYMBICORT [Concomitant]
     Route: 055
  26. SINGULAIR [Concomitant]
     Route: 048
  27. VOLTAREN [Concomitant]
  28. UNSPECIFIED MEDICATION [Concomitant]

REACTIONS (19)
  - ASTHMA [None]
  - B-CELL LYMPHOMA [None]
  - BRONCHIAL NEOPLASM [None]
  - BURSITIS [None]
  - DIZZINESS [None]
  - DYSKINESIA OESOPHAGEAL [None]
  - FALL [None]
  - FEBRILE NEUTROPENIA [None]
  - FLUID RETENTION [None]
  - GASTROOESOPHAGEAL REFLUX DISEASE [None]
  - INJECTION SITE PAIN [None]
  - INSOMNIA [None]
  - IRON DEFICIENCY ANAEMIA [None]
  - LIVER FUNCTION TEST ABNORMAL [None]
  - MICTURITION URGENCY [None]
  - MOUTH ULCERATION [None]
  - NAUSEA [None]
  - PELVIC PROLAPSE [None]
  - TYPE 2 DIABETES MELLITUS [None]
